FAERS Safety Report 4606003-6 (Version None)
Quarter: 2005Q1

REPORT INFORMATION
  Report Type: 
  Country: None (occurrence: None)
  Receive Date: 20050311
  Receipt Date: 20050128
  Transmission Date: 20050727
  Serious: Yes (Death)
  Sender: FDA-Public Use
  Company Number: PHHO2005JP01875

PATIENT
  Age: 32 Year
  Sex: Male

DRUGS (2)
  1. IMATINIB [Suspect]
     Indication: ACUTE LYMPHOCYTIC LEUKAEMIA
     Dosage: 600 MG, QD
     Route: 048
     Dates: start: 20030205, end: 20030205
  2. CHEMOTHERAPEUTICS,OTHER [Concomitant]

REACTIONS (6)
  - BLOOD PRESSURE DECREASED [None]
  - CHEST PAIN [None]
  - DYSPNOEA [None]
  - HAEMOPTYSIS [None]
  - LUNG INFILTRATION [None]
  - PULMONARY HAEMORRHAGE [None]
